FAERS Safety Report 6088119-3 (Version None)
Quarter: 2009Q1

REPORT INFORMATION
  Report Type: 
  Country: None (occurrence: None)
  Receive Date: 20090224
  Receipt Date: 20090213
  Transmission Date: 20090719
  Serious: Yes (Hospitalization)
  Sender: FDA-Public Use
  Company Number: DE-RANBAXY-2009RR-21923

PATIENT
  Age: 61 Year
  Sex: Male

DRUGS (1)
  1. CLINDAMYCIN HYDROCHLORIDE [Suspect]
     Indication: OSTEITIS
     Dosage: 600 MG, TID
     Route: 048
     Dates: start: 20090101, end: 20090101

REACTIONS (3)
  - EMERGENCY CARE [None]
  - HOSPITALISATION [None]
  - TONGUE OEDEMA [None]
